FAERS Safety Report 9562584 (Version 1)
Quarter: 2013Q3

REPORT INFORMATION
  Report Type: Report from Study
  Country: US (occurrence: US)
  Receive Date: 20130927
  Receipt Date: 20130927
  Transmission Date: 20140515
  Serious: Yes (Other)
  Sender: FDA-Public Use
  Company Number: US-ABBVIE-13P-163-1149446-00

PATIENT
  Age: 57 Year
  Sex: Female

DRUGS (1)
  1. CREON [Suspect]
     Indication: PANCREATITIS CHRONIC
     Dosage: 3 CAPSULES FOUR TIMES DAILY
     Route: 048
     Dates: start: 2011

REACTIONS (3)
  - Oral surgery [Unknown]
  - Abdominal tenderness [Not Recovered/Not Resolved]
  - Pancreaticoduodenectomy [Unknown]
